FAERS Safety Report 6195266-4 (Version None)
Quarter: 2009Q2

REPORT INFORMATION
  Report Type: 
  Country: None (occurrence: None)
  Receive Date: 20090519
  Receipt Date: 20090511
  Transmission Date: 20091009
  Serious: Yes (Other)
  Sender: FDA-Public Use
  Company Number: US-AVENTIS-200914148US

PATIENT
  Sex: Female

DRUGS (4)
  1. LANTUS [Suspect]
     Dosage: DOSE: 17 UNITES TWICE DAILY
     Route: 058
  2. OPTICLIK (INSULIN INJECTION PEN) [Suspect]
  3. NOVOLOG [Concomitant]
     Dosage: DOSE: PER CARB COUNT AT MEALS
  4. SYNTHROID [Concomitant]
     Dosage: DOSE: 1 TAB

REACTIONS (1)
  - CATARACT [None]
